FAERS Safety Report 24758982 (Version 1)
Quarter: 2024Q4

REPORT INFORMATION
  Report Type: Report from Study
  Country: BR (occurrence: BR)
  Receive Date: 20241220
  Receipt Date: 20241220
  Transmission Date: 20250114
  Serious: Yes (Disabling, Other)
  Sender: SANOFI AVENTIS
  Company Number: BR-SA-SAC20231223000303

PATIENT
  Age: 29 Year
  Sex: Male

DRUGS (5)
  1. ALEMTUZUMAB [Suspect]
     Active Substance: ALEMTUZUMAB
     Indication: Multiple sclerosis
     Dosage: 5 DF
     Route: 042
     Dates: start: 20231024, end: 202310
  2. NATALIZUMAB [Concomitant]
     Active Substance: NATALIZUMAB
     Dosage: UNK
  3. FINGOLIMOD [Concomitant]
     Active Substance: FINGOLIMOD
     Dosage: UNK
  4. GLATIRAMER [Concomitant]
     Active Substance: GLATIRAMER
     Dosage: UNK
  5. INTERFERON [Concomitant]
     Active Substance: INTERFERON
     Dosage: UNK

REACTIONS (7)
  - Hemiparesis [Unknown]
  - Walking disability [Unknown]
  - Cognitive disorder [Unknown]
  - Incontinence [Unknown]
  - Product prescribing issue [Unknown]
  - Incorrect dose administered [Unknown]
  - Drug ineffective [Unknown]

NARRATIVE: CASE EVENT DATE: 20231024
